FAERS Safety Report 9282705 (Version 1)
Quarter: 2013Q2

REPORT INFORMATION
  Report Type: Report from Study
  Country: US (occurrence: US)
  Receive Date: 20130510
  Receipt Date: 20130510
  Transmission Date: 20140414
  Serious: Yes (Other)
  Sender: FDA-Public Use
  Company Number: US-ROCHE-1222837

PATIENT
  Age: 81 Year
  Sex: Male
  Weight: 97.61 kg

DRUGS (2)
  1. RITUXAN [Suspect]
     Indication: WALDENSTROM^S MACROGLOBULINAEMIA
     Route: 042
     Dates: start: 20130430
  2. TYLENOL [Concomitant]
     Indication: PYREXIA
     Route: 048
     Dates: start: 20130430

REACTIONS (4)
  - Pyrexia [Recovering/Resolving]
  - Convulsion [Recovered/Resolved]
  - Chills [Recovering/Resolving]
  - Dyspnoea [Recovered/Resolved]
